FAERS Safety Report 10105522 (Version 2)
Quarter: 2014Q3

REPORT INFORMATION
  Report Type: Other
  Country: US (occurrence: US)
  Receive Date: 20140424
  Receipt Date: 20140808
  Transmission Date: 20150326
  Serious: Yes (Hospitalization, Other)
  Sender: FDA-Public Use
  Company Number: US-GSKPPD-2014GSK001209

PATIENT
  Age: 73 Year

DRUGS (1)
  1. AVANDIA [Suspect]
     Active Substance: ROSIGLITAZONE MALEATE
     Indication: DIABETES MELLITUS
     Route: 048
     Dates: start: 200305, end: 200308

REACTIONS (2)
  - Cardiac failure congestive [Recovered/Resolved]
  - Cerebrovascular accident [None]

NARRATIVE: CASE EVENT DATE: 20090423
